FAERS Safety Report 6502445-2 (Version None)
Quarter: 2009Q4

REPORT INFORMATION
  Report Type: 
  Country: None (occurrence: None)
  Receive Date: 20091203
  Receipt Date: 20091117
  Transmission Date: 20100525
  Serious: Yes (Death)
  Sender: FDA-Public Use
  Company Number: B0608662A

PATIENT

DRUGS (5)
  1. MELPHALAN HYDROCHLORIDE [Suspect]
     Indication: LYMPHOMA
     Dosage: 140 MG, M2;
  2. ETOPOSIDE  (FORMULATION UNLNOWN)  (GENERIC [Suspect]
     Indication: LYMPHOMA
     Dosage: 200 MG, M2;
  3. GRANULOCYTE COL. STIM.FACT. UNK [Concomitant]
  4. FOTEMUSTINE  (FORMULATION UNKNOWN) [Suspect]
     Indication: LYMPHOMA
     Dosage: 150,MG/ M2       UKK/UNKNOWN
  5. CYTARABINE  (FORMULATION UNKNNOWN) [Suspect]
     Indication: LYMPHOMA
     Dosage: 400MG/M2

REACTIONS (2)
  - MENINGITIS BACTERIAL [None]
  - STEM CELL TRANSPLANT [None]
